FAERS Safety Report 4459141-5 (Version None)
Quarter: 2004Q3

REPORT INFORMATION
  Report Type: 
  Country: None (occurrence: None)
  Receive Date: 20040920
  Receipt Date: 20040920
  Transmission Date: 20050211
  Serious: Yes (Other)
  Sender: FDA-Public Use
  Company Number: None

PATIENT
  Sex: Female
  Weight: 109.3169 kg

DRUGS (8)
  1. PROZAC [Suspect]
     Indication: FIBROMYALGIA
     Dosage: 20 -60 MG
     Dates: start: 20030601, end: 20040101
  2. LEXAPRO [Suspect]
     Indication: ANXIETY
     Dosage: 10 MG
     Dates: start: 20040301, end: 20040501
  3. LEXAPRO [Suspect]
     Indication: DYSPHONIA
     Dosage: 10 MG
     Dates: start: 20040301, end: 20040501
  4. SONATA [Concomitant]
  5. PREMARIN CREAM [Concomitant]
  6. ULTRACET [Concomitant]
  7. LASIX [Concomitant]
  8. ... [Concomitant]

REACTIONS (7)
  - DISTURBANCE IN ATTENTION [None]
  - FEELING ABNORMAL [None]
  - HYPOAESTHESIA [None]
  - PAIN [None]
  - PHARMACEUTICAL PRODUCT COMPLAINT [None]
  - SENSORY DISTURBANCE [None]
  - THINKING ABNORMAL [None]
